FAERS Safety Report 8822572 (Version 1)
Quarter: 2012Q4

REPORT INFORMATION
  Report Type: 
  Country: FR (occurrence: FR)
  Receive Date: 20121003
  Receipt Date: 20121003
  Transmission Date: 20130627
  Serious: Yes (Other)
  Sender: FDA-Public Use
  Company Number: FR-AMGEN-FRASP2012017941

PATIENT
  Age: 59 Year
  Sex: Female
  Weight: 41 kg

DRUGS (3)
  1. PROLIA [Suspect]
     Indication: OSTEOPOROSIS POSTMENOPAUSAL
     Dosage: 60 mg, UNK
     Route: 058
     Dates: start: 20120219
  2. PROLIA [Suspect]
     Dosage: UNK
     Dates: start: 20120902
  3. FIXICAL [Concomitant]
     Indication: OSTEOPOROSIS
     Dosage: 500 mg, qd
     Route: 048

REACTIONS (3)
  - Systemic mycosis [Not Recovered/Not Resolved]
  - Vulvovaginal mycotic infection [Recovered/Resolved]
  - Fungal infection [Recovered/Resolved]
